FAERS Safety Report 8907230 (Version 1)
Quarter: 2012Q4

REPORT INFORMATION
  Report Type: 
  Country: US (occurrence: US)
  Receive Date: 20121114
  Receipt Date: 20121114
  Transmission Date: 20130627
  Serious: No
  Sender: FDA-Public Use
  Company Number: US-BAYER-2012-114305

PATIENT
  Sex: Female

DRUGS (1)
  1. BETASERON [Suspect]
     Indication: MS
     Dosage: 1 ml, QD
     Route: 058
     Dates: start: 2008

REACTIONS (6)
  - Headache [None]
  - Chills [None]
  - Injection site mass [None]
  - Dyspnoea [None]
  - Injection site bruising [None]
  - Musculoskeletal stiffness [None]
